FAERS Safety Report 18735910 (Version 1)
Quarter: 2021Q1

REPORT INFORMATION
  Report Type: Spontaneous
  Country: IN (occurrence: IN)
  Receive Date: 20210113
  Receipt Date: 20210113
  Transmission Date: 20210419
  Serious: Yes (Life-Threatening, Hospitalization, Disabling)
  Sender: FDA-Public Use
  Company Number: IN-MYLANLABS-2021M1001593

PATIENT
  Age: 3 Year
  Sex: Male

DRUGS (1)
  1. PARACETAMOL [Suspect]
     Active Substance: ACETAMINOPHEN
     Indication: PRODUCT USED FOR UNKNOWN INDICATION
     Dosage: CONSUMPTION OF 40 ML OF SYRUP PARACETAMOL 250 MG/5ML (200 MG/KG OF PARACETAMOL)
     Route: 048

REACTIONS (6)
  - Toxicity to various agents [Unknown]
  - Toxic leukoencephalopathy [Recovered/Resolved]
  - Hepatic enzyme increased [Unknown]
  - Overdose [Unknown]
  - Blindness cortical [Not Recovered/Not Resolved]
  - Respiratory distress [Recovered/Resolved]
